FAERS Safety Report 8511683-9 (Version None)
Quarter: 2012Q3

REPORT INFORMATION
  Report Type: 
  Country: None (occurrence: None)
  Receive Date: 20120710
  Receipt Date: 20120710
  Transmission Date: 20120928
  Serious: Yes (Death, Hospitalization)
  Sender: FDA-Public Use
  Company Number: None

PATIENT
  Sex: Female
  Weight: 47.9 kg

DRUGS (2)
  1. CISPLATIN [Suspect]
     Dosage: 265 MG
  2. ETOPOSIDE [Suspect]
     Dosage: 2012 MG

REACTIONS (14)
  - LOBAR PNEUMONIA [None]
  - NEUTROPENIA [None]
  - BLOOD CREATININE INCREASED [None]
  - DYSPNOEA [None]
  - MYALGIA [None]
  - SOMNOLENCE [None]
  - PAIN [None]
  - DEHYDRATION [None]
  - ASTHENIA [None]
  - DYSPHAGIA [None]
  - ANAEMIA [None]
  - MALNUTRITION [None]
  - THROMBOCYTOPENIA [None]
  - PERICARDITIS [None]
